FAERS Safety Report 17963370 (Version 1)
Quarter: 2020Q2

REPORT INFORMATION
  Report Type: Spontaneous
  Country: DE (occurrence: DE)
  Receive Date: 20200630
  Receipt Date: 20200630
  Transmission Date: 20200714
  Serious: Yes (Hospitalization)
  Sender: FDA-Public Use
  Company Number: NVSC2020DE182242

PATIENT
  Age: 33 Year
  Sex: Male

DRUGS (2)
  1. AMOXI 1000 - 1 A PHARMA [Suspect]
     Active Substance: AMOXICILLIN
     Indication: BACTERIAL INFECTION
     Dosage: 3000 MG, UNKNOWN
     Route: 065
     Dates: start: 2014, end: 2014
  2. AMOXI 1000 - 1 A PHARMA [Suspect]
     Active Substance: AMOXICILLIN
     Dosage: 3000 MG, QD
     Route: 065
     Dates: start: 2019, end: 2019

REACTIONS (3)
  - Fatigue [Not Recovered/Not Resolved]
  - Dizziness [Not Recovered/Not Resolved]
  - Meningitis aseptic [Not Recovered/Not Resolved]

NARRATIVE: CASE EVENT DATE: 2014
